FAERS Safety Report 7076436-X (Version None)
Quarter: 2010Q4

REPORT INFORMATION
  Report Type: 
  Country: None (occurrence: None)
  Receive Date: 20101022
  Receipt Date: 20101012
  Transmission Date: 20110411
  Serious: Yes (Hospitalization)
  Sender: FDA-Public Use
  Company Number: JPI-P-012539

PATIENT
  Age: 56 Year
  Sex: Female
  Weight: 88.4514 kg

DRUGS (14)
  1. XYREM [Suspect]
     Indication: NARCOLEPSY
     Dosage: ORAL; 9 GM (4.5 GM, 2 IN 1 D), ORAL
     Route: 048
     Dates: start: 20090801, end: 20100706
  2. XYREM [Suspect]
     Indication: NARCOLEPSY
     Dosage: ORAL; 9 GM (4.5 GM, 2 IN 1 D), ORAL
     Route: 048
     Dates: start: 20100101
  3. XYREM [Suspect]
     Indication: NARCOLEPSY
     Dosage: ORAL; 9 GM (4.5 GM, 2 IN 1 D), ORAL
     Route: 048
     Dates: start: 20100714
  4. DULOXETINE HYDROCHLORIDE [Concomitant]
  5. ACETYLCYSTEINE [Concomitant]
  6. ROPINOROLE [Concomitant]
  7. ALPRAZOLAM [Concomitant]
  8. MUTIGEN IRON SUPLLEMEMNT [Concomitant]
  9. FAMOTIDINE [Concomitant]
  10. TRAMADOL HCL [Concomitant]
  11. CELECOXIB [Concomitant]
  12. OLOPATADINE [Concomitant]
  13. CYCLOSPORINE [Concomitant]
  14. IBANDRONATE SODIUM [Concomitant]

REACTIONS (7)
  - ABNORMAL BEHAVIOUR [None]
  - CARBON DIOXIDE INCREASED [None]
  - CONDITION AGGRAVATED [None]
  - CONJUNCTIVITIS [None]
  - DRY EYE [None]
  - HERNIA [None]
  - WEIGHT DECREASED [None]
